FAERS Safety Report 17635909 (Version 2)
Quarter: 2020Q2

REPORT INFORMATION
  Report Type: Spontaneous
  Country: US (occurrence: US)
  Receive Date: 20200407
  Receipt Date: 20200420
  Transmission Date: 20200713
  Serious: Yes (Hospitalization)
  Sender: FDA-Public Use
  Company Number: US-TEVA-2020-US-1218188

PATIENT
  Age: 52 Year
  Sex: Male

DRUGS (1)
  1. CEFALEXIN [Suspect]
     Active Substance: CEPHALEXIN
     Indication: CELLULITIS
     Route: 065

REACTIONS (2)
  - Mania [Recovering/Resolving]
  - Psychotic disorder [Recovering/Resolving]
